FAERS Safety Report 4308426-1 (Version None)
Quarter: 2004Q1

REPORT INFORMATION
  Report Type: 
  Country: None (occurrence: None)
  Receive Date: 20040301
  Receipt Date: 20010521
  Transmission Date: 20041129
  Serious: Yes (Death, Hospitalization)
  Sender: FDA-Public Use
  Company Number: WAES 01052251

PATIENT
  Age: 53 Year
  Sex: Female

DRUGS (2)
  1. PRIMAXIN [Suspect]
     Route: 042
  2. PRIMACOR [Suspect]
     Indication: HYPERTENSION
     Route: 042

REACTIONS (1)
  - MEDICATION ERROR [None]
